FAERS Safety Report 6003167-7 (Version None)
Quarter: 2008Q4

REPORT INFORMATION
  Report Type: 
  Country: None (occurrence: None)
  Receive Date: 20081212
  Receipt Date: 20081212
  Transmission Date: 20090506
  Serious: No
  Sender: FDA-Public Use
  Company Number: None

PATIENT
  Age: 66 Year
  Sex: Male
  Weight: 73.94 kg

DRUGS (2)
  1. LOXAPINE [Suspect]
     Indication: DELUSION
     Dosage: 20 MG BID PO
     Route: 048
     Dates: start: 20081203, end: 20081205
  2. LOXAPINE [Suspect]
     Indication: PARANOIA
     Dosage: 20 MG BID PO
     Route: 048
     Dates: start: 20081203, end: 20081205

REACTIONS (3)
  - MENTAL IMPAIRMENT [None]
  - NEUROLEPTIC MALIGNANT SYNDROME [None]
  - TREMOR [None]
